FAERS Safety Report 8503421-0 (Version None)
Quarter: 2012Q3

REPORT INFORMATION
  Report Type: 
  Country: None (occurrence: None)
  Receive Date: 20120702
  Receipt Date: 20120615
  Transmission Date: 20120928
  Serious: Yes (Other)
  Sender: FDA-Public Use
  Company Number: 2012MA007519

PATIENT
  Age: 52 Year
  Sex: Male

DRUGS (3)
  1. METHOTREXATE [Concomitant]
  2. METFORMIN HYDROCHLORIDE [Suspect]
  3. SULFASALAZINE [Concomitant]

REACTIONS (1)
  - ALCOHOLISM [None]
